FAERS Safety Report 6733892-1 (Version None)
Quarter: 2010Q2

REPORT INFORMATION
  Report Type: 
  Country: None (occurrence: None)
  Receive Date: 20100520
  Receipt Date: 20100518
  Transmission Date: 20101027
  Serious: Yes (Death)
  Sender: FDA-Public Use
  Company Number: NL-ROCHE-700351

PATIENT
  Sex: Male
  Weight: 91 kg

DRUGS (10)
  1. BEVACIZUMAB [Suspect]
     Indication: ACUTE MYELOID LEUKAEMIA
     Dosage: DATE OF LAST DOSE PRIOR TO SAE: 13 SEPTEMBER 2008, ACTION TAKEN: NONE
     Route: 042
     Dates: start: 20080913
  2. DAUNORUBICIN HCL [Suspect]
     Indication: ACUTE MYELOID LEUKAEMIA
     Dosage: DATE OF LAST DOSE PRIOR TO SAE: 15 SEPTEMBER 2008, ACTION TAKEN: NONE
     Route: 042
     Dates: start: 20080913
  3. CYTARABINE [Suspect]
     Indication: ACUTE MYELOID LEUKAEMIA
     Dosage: DATE OF LAST DOSE PRIOR TO SAE: 20 SEPTEMBER 2008, ACTION TAKEN: NONE
     Route: 042
     Dates: start: 20080913
  4. CIPROFLOXACIN [Concomitant]
     Indication: PROPHYLAXIS
     Route: 048
     Dates: start: 20080912, end: 20081012
  5. SYMBICORT [Concomitant]
     Dosage: DAILY DOSE: 4DD
     Route: 055
     Dates: start: 20080911, end: 20081012
  6. BISOPROLOL [Concomitant]
     Route: 048
     Dates: start: 20080911, end: 20081012
  7. AMLODIPINE [Concomitant]
     Indication: HYPERTENSION
     Route: 048
     Dates: start: 20080912, end: 20081001
  8. FUROSEMIDE [Concomitant]
     Dosage: DAILY DOSE: 40-80MG
     Route: 042
     Dates: start: 20080917, end: 20081012
  9. AMOCILLINE [Concomitant]
     Route: 042
     Dates: start: 20080921, end: 20080930
  10. AMPHOTERICIN B [Concomitant]
     Indication: PROPHYLAXIS
     Route: 042
     Dates: start: 20080911, end: 20081001

REACTIONS (2)
  - BRONCHOPULMONARY ASPERGILLOSIS [None]
  - RESPIRATORY FAILURE [None]
